FAERS Safety Report 8012906-5 (Version None)
Quarter: 2011Q4

REPORT INFORMATION
  Report Type: 
  Country: None (occurrence: None)
  Receive Date: 20111229
  Receipt Date: 20111221
  Transmission Date: 20120403
  Serious: Yes (Other)
  Sender: FDA-Public Use
  Company Number: FR-JNJFOC-20111108669

PATIENT
  Age: 68 Year
  Sex: Female
  Weight: 41 kg

DRUGS (8)
  1. FERROUS SULFATE TAB [Concomitant]
  2. POLYETHYLENE GLYCOL [Concomitant]
  3. UVEDOSE [Concomitant]
  4. MICONAZOLE [Suspect]
     Indication: PRODUCT USED FOR UNKNOWN INDICATION
     Dosage: 2-2-2-2
     Route: 048
  5. ASPIRIN [Concomitant]
  6. MICONAZOLE [Suspect]
     Dosage: 2-2-2-2 (NEW BATCH NUMBER)
     Route: 048
  7. ZOLPIDEM [Concomitant]
  8. OMEPRAZOLE [Concomitant]

REACTIONS (4)
  - ANXIETY [None]
  - PRODUCT QUALITY ISSUE [None]
  - COUGH [None]
  - DYSPNOEA [None]
